FAERS Safety Report 7129924-1 (Version None)
Quarter: 2010Q4

REPORT INFORMATION
  Report Type: 
  Country: None (occurrence: None)
  Receive Date: 20101130
  Receipt Date: 20101122
  Transmission Date: 20110411
  Serious: Yes (Other)
  Sender: FDA-Public Use
  Company Number: US-AMGEN-USASP2010005399

PATIENT

DRUGS (6)
  1. NPLATE [Suspect]
     Indication: IDIOPATHIC THROMBOCYTOPENIC PURPURA
     Dosage: UNK
     Dates: start: 20090526
  2. NPLATE [Suspect]
     Dosage: UNK
     Dates: start: 20090602
  3. NPLATE [Suspect]
     Dosage: UNK
     Dates: start: 20090609
  4. NPLATE [Suspect]
     Dosage: 6 A?G/KG, UNK
     Dates: start: 20090526, end: 20091027
  5. CORTICOSTEROIDS [Concomitant]
     Indication: IDIOPATHIC THROMBOCYTOPENIC PURPURA
  6. IMMU-G [Concomitant]

REACTIONS (2)
  - DRUG INEFFECTIVE [None]
  - THERAPEUTIC RESPONSE DECREASED [None]
